FAERS Safety Report 13045481 (Version 1)
Quarter: 2016Q4

REPORT INFORMATION
  Report Type: Spontaneous
  Country: US (occurrence: US)
  Receive Date: 20161220
  Receipt Date: 20161220
  Transmission Date: 20170207
  Serious: Yes (Hospitalization)
  Sender: FDA-Public Use
  Company Number: None

PATIENT
  Age: 42 Year
  Sex: Female
  Weight: 75.5 kg

DRUGS (4)
  1. CYCLOPHOSPHAMIDE. [Suspect]
     Active Substance: CYCLOPHOSPHAMIDE
     Dates: end: 20161128
  2. CARBOPLATIN. [Suspect]
     Active Substance: CARBOPLATIN
     Dates: end: 20161212
  3. DOXORUBICIN HYDROCHLORIDE. [Suspect]
     Active Substance: DOXORUBICIN HYDROCHLORIDE
     Dates: end: 20161128
  4. TAXOL [Suspect]
     Active Substance: PACLITAXEL
     Dates: end: 20161212

REACTIONS (3)
  - Abdominal pain [None]
  - Dehydration [None]
  - Vomiting [None]

NARRATIVE: CASE EVENT DATE: 20161215
